FAERS Safety Report 16424123 (Version 3)
Quarter: 2019Q3

REPORT INFORMATION
  Report Type: Spontaneous
  Country: MX (occurrence: MX)
  Receive Date: 20190613
  Receipt Date: 20190913
  Transmission Date: 20191004
  Serious: Yes (Other)
  Sender: FDA-Public Use
  Company Number: MX-ASTRAZENECA-2019SE86292

PATIENT
  Age: 592 Month
  Sex: Female
  Weight: 53 kg

DRUGS (7)
  1. EUTIROX [Concomitant]
     Active Substance: LEVOTHYROXINE SODIUM
     Indication: HYPOTHYROIDISM
     Route: 048
     Dates: start: 201905
  2. METFORMINA [Concomitant]
     Active Substance: METFORMIN HYDROCHLORIDE
     Indication: DIABETES MELLITUS
     Route: 048
     Dates: start: 2007
  3. GALVUS MET [Concomitant]
     Active Substance: METFORMIN HYDROCHLORIDE\VILDAGLIPTIN
     Indication: DIABETES MELLITUS
     Dosage: 50/850 MG, 1 TABLET EVERY 24 HOURS
     Route: 048
     Dates: start: 2016
  4. FOLIC ACID. [Concomitant]
     Active Substance: FOLIC ACID
     Indication: PAPILLOMA VIRAL INFECTION
     Route: 048
     Dates: start: 201905, end: 201908
  5. GENISTAN [Concomitant]
     Indication: ASPHYXIA
     Dosage: DAILY
     Route: 048
     Dates: start: 2019, end: 201908
  6. DICLOFENACO [Concomitant]
     Active Substance: DICLOFENAC
     Indication: PAPILLOMA VIRAL INFECTION
     Route: 048
     Dates: start: 201905
  7. FORXIGA [Suspect]
     Active Substance: DAPAGLIFLOZIN
     Indication: DIABETES MELLITUS
     Route: 048
     Dates: start: 2016

REACTIONS (8)
  - Hypothyroidism [Not Recovered/Not Resolved]
  - Fatigue [Recovered/Resolved]
  - Weight increased [Unknown]
  - Osteoarthritis [Recovering/Resolving]
  - Blood glucose increased [Unknown]
  - Hot flush [Unknown]
  - Papilloma viral infection [Not Recovered/Not Resolved]
  - Asphyxia [Not Recovered/Not Resolved]

NARRATIVE: CASE EVENT DATE: 2017
